FAERS Safety Report 15832537 (Version 3)
Quarter: 2019Q1

REPORT INFORMATION
  Report Type: Spontaneous
  Country: US (occurrence: US)
  Receive Date: 20190116
  Receipt Date: 20190215
  Transmission Date: 20190417
  Serious: Yes (Hospitalization, Other)
  Sender: FDA-Public Use
  Company Number: US-AUROBINDO-AUR-APL-2019-000255

PATIENT

DRUGS (9)
  1. LOSARTAN. [Concomitant]
     Active Substance: LOSARTAN
     Indication: PRODUCT USED FOR UNKNOWN INDICATION
     Dosage: 25 MILLIGRAM, DAILY
     Route: 065
  2. ROSUVASTATIN. [Concomitant]
     Active Substance: ROSUVASTATIN
     Indication: PRODUCT USED FOR UNKNOWN INDICATION
     Dosage: 20 MILLIGRAM, DAILY
     Route: 065
  3. ESCITALOPRAM [Concomitant]
     Active Substance: ESCITALOPRAM OXALATE
     Indication: PRODUCT USED FOR UNKNOWN INDICATION
     Dosage: 20 MILLIGRAM, DAILY
     Route: 065
  4. METFORMIN [Concomitant]
     Active Substance: METFORMIN HYDROCHLORIDE
     Indication: PRODUCT USED FOR UNKNOWN INDICATION
     Dosage: 500 MILLIGRAM, TWO TIMES A DAY
     Route: 065
  5. QUETIAPINE. [Concomitant]
     Active Substance: QUETIAPINE
     Indication: PRODUCT USED FOR UNKNOWN INDICATION
     Dosage: 100 MILLIGRAM, DAILY
     Route: 065
  6. SITAGLIPTIN [Concomitant]
     Active Substance: SITAGLIPTIN
     Indication: PRODUCT USED FOR UNKNOWN INDICATION
     Dosage: 100 MILLIGRAM, DAILY
     Route: 065
  7. ALPRAZOLAM TABLETS [Suspect]
     Active Substance: ALPRAZOLAM
     Indication: ANXIETY DISORDER
     Dosage: 0.25 MILLIGRAM, HIGH DOSE
     Route: 065
  8. ALPRAZOLAM TABLETS [Suspect]
     Active Substance: ALPRAZOLAM
     Indication: MAJOR DEPRESSION
     Dosage: 1 MILLIGRAM, FOUR TIMES/DAY, DOSE INCREASED, HIGH DOSE
     Route: 065
  9. ALPRAZOLAM TABLETS [Suspect]
     Active Substance: ALPRAZOLAM
     Dosage: UNK,SELF-ADMINISTERING ADDITIONAL ALPRAZOLAM TABLETS PURCHASED WITHOUT A PRESCRIPTION
     Route: 065

REACTIONS (21)
  - Mental status changes [Recovered/Resolved]
  - Immobile [Recovered/Resolved]
  - Unresponsive to stimuli [Recovered/Resolved]
  - Eyelid ptosis [Recovered/Resolved]
  - Blood creatinine increased [Recovered/Resolved]
  - Decreased eye contact [Recovered/Resolved]
  - Facial paralysis [Recovered/Resolved]
  - Somnolence [Recovered/Resolved]
  - Depressed level of consciousness [Recovered/Resolved]
  - Withdrawal catatonia [Recovered/Resolved]
  - Blood urea increased [Recovered/Resolved]
  - Thrombocytosis [Recovered/Resolved]
  - Incontinence [Recovered/Resolved]
  - Drug withdrawal syndrome [Recovered/Resolved]
  - Hypertonia [Recovered/Resolved]
  - Muscle rigidity [Recovered/Resolved]
  - Negativism [Recovered/Resolved]
  - Mutism [Recovered/Resolved]
  - Tremor [Recovered/Resolved]
  - Leukocytosis [Recovered/Resolved]
  - Prescription drug used without a prescription [Recovered/Resolved]
